FAERS Safety Report 7230603-0 (Version None)
Quarter: 2011Q1

REPORT INFORMATION
  Report Type: 
  Country: None (occurrence: None)
  Receive Date: 20110118
  Receipt Date: 20110111
  Transmission Date: 20110831
  Serious: Yes (Death, Other)
  Sender: FDA-Public Use
  Company Number: PHHY2010JP88225

PATIENT
  Age: 47 Year
  Sex: Female

DRUGS (1)
  1. ZOMETA [Suspect]
     Indication: METASTASES TO BONE
     Dosage: 20 MG, UNK
     Dates: start: 20060901

REACTIONS (8)
  - PAIN IN JAW [None]
  - OSTEITIS [None]
  - TOOTHACHE [None]
  - OSTEONECROSIS OF JAW [None]
  - APHASIA [None]
  - BONE DISORDER [None]
  - BRAIN ABSCESS [None]
  - ALTERED STATE OF CONSCIOUSNESS [None]
